FAERS Safety Report 5134404-9 (Version None)
Quarter: 2006Q4

REPORT INFORMATION
  Report Type: 
  Country: None (occurrence: None)
  Receive Date: 20061025
  Receipt Date: 20061016
  Transmission Date: 20070319
  Serious: Yes (Hospitalization, Other)
  Sender: FDA-Public Use
  Company Number: US-BAYER-200614351BCC

PATIENT
  Sex: Male
  Weight: 77 kg

DRUGS (1)
  1. DOMEBORO [Suspect]
     Indication: ACCIDENTAL EXPOSURE
     Route: 048

REACTIONS (4)
  - ACCIDENTAL EXPOSURE [None]
  - DYSPNOEA [None]
  - INCORRECT ROUTE OF DRUG ADMINISTRATION [None]
  - RENAL FAILURE [None]
